FAERS Safety Report 8877353 (Version 1)
Quarter: 2012Q4

REPORT INFORMATION
  Report Type: 
  Country: US (occurrence: US)
  Receive Date: 20121023
  Receipt Date: 20121023
  Transmission Date: 20130627
  Serious: No
  Sender: FDA-Public Use
  Company Number: US-AMGEN-USASP2012059986

PATIENT
  Age: 15 Year
  Sex: Female

DRUGS (2)
  1. ENBREL [Suspect]
     Indication: JUVENILE ARTHRITIS
     Dosage: 25 UNK, qwk
     Route: 058
     Dates: start: 20100428, end: 20111231
  2. METHOTREXATE [Concomitant]
     Dosage: 0.7 UNK, UNK
     Dates: start: 201004

REACTIONS (1)
  - Juvenile idiopathic arthritis [Not Recovered/Not Resolved]
